FAERS Safety Report 23697893 (Version 1)
Quarter: 2024Q2

REPORT INFORMATION
  Report Type: Spontaneous
  Country: CN (occurrence: CN)
  Receive Date: 20240402
  Receipt Date: 20240402
  Transmission Date: 20240716
  Serious: Yes (Hospitalization)
  Sender: FDA-Public Use
  Company Number: CN-PFIZER INC-PV202400042090

PATIENT
  Age: 17 Year
  Sex: Male
  Weight: 51.5 kg

DRUGS (3)
  1. CYTARABINE [Suspect]
     Active Substance: CYTARABINE
     Indication: Non-Hodgkin^s lymphoma
     Dosage: 2.94 G, 2X/DAY
     Route: 042
     Dates: start: 20240306, end: 20240307
  2. ETOPOSIDE [Suspect]
     Active Substance: ETOPOSIDE
     Indication: Non-Hodgkin^s lymphoma
     Dosage: 147 MG, 2X/DAY
     Route: 042
     Dates: start: 20240308, end: 20240310
  3. PEGASPARGASE [Suspect]
     Active Substance: PEGASPARGASE
     Dosage: 3675 IU
     Route: 030
     Dates: start: 20240311

REACTIONS (7)
  - Myelosuppression [Recovering/Resolving]
  - Skin ulcer [Recovering/Resolving]
  - Oral herpes [Recovering/Resolving]
  - Abdominal pain [Recovering/Resolving]
  - Infection [Recovering/Resolving]
  - Dyspnoea [Recovering/Resolving]
  - Gingival discolouration [Recovering/Resolving]

NARRATIVE: CASE EVENT DATE: 20240308
